FAERS Safety Report 5242944-7 (Version None)
Quarter: 2007Q1

REPORT INFORMATION
  Report Type: 
  Country: None (occurrence: None)
  Receive Date: 20070215
  Receipt Date: 20070207
  Transmission Date: 20070707
  Serious: Yes (Other)
  Sender: FDA-Public Use
  Company Number: 230716K07USA

PATIENT
  Age: 43 Year
  Sex: Male

DRUGS (3)
  1. REBIF [Suspect]
     Indication: MULTIPLE SCLEROSIS
     Dosage: 44 MCG, 3 IN WEEKS, SUBCUTANEOUS
     Route: 058
     Dates: start: 20040712, end: 20061201
  2. DEXAMETHASONE [Suspect]
     Indication: MULTIPLE SCLEROSIS
     Dosage: NOT REPORTED, ONCE, NOT REPORTED
     Dates: start: 20060227, end: 20060227
  3. WELLBUTRIN [Concomitant]

REACTIONS (3)
  - ANXIETY [None]
  - DEEP VEIN THROMBOSIS [None]
  - NEUROMA [None]
